FAERS Safety Report 8773322 (Version 2)
Quarter: 2012Q4

REPORT INFORMATION
  Report Type: Report from Study
  Country: US (occurrence: US)
  Receive Date: 20120907
  Receipt Date: 20121108
  Transmission Date: 20130627
  Serious: Yes (Hospitalization)
  Sender: FDA-Public Use
  Company Number: US-PURDUE-USA-2012-0092465

PATIENT
  Sex: Male

DRUGS (3)
  1. OXYCONTIN (NDA 22-272) [Suspect]
     Indication: CANCER PAIN
     Dosage: 10 mg, q12h
     Route: 048
  2. OXYCONTIN (NDA 22-272) [Suspect]
     Dosage: 20 mg, q12h
     Route: 048
  3. OXYCODONE HYDROCHLORIDE (SIMILAR TO NDA 22-272) [Suspect]
     Indication: CANCER PAIN
     Dosage: 40 mg, q4h prn
     Route: 048

REACTIONS (3)
  - Constipation [Recovered/Resolved]
  - Dehydration [Unknown]
  - Asthenia [Unknown]
